FAERS Safety Report 7079389-3 (Version None)
Quarter: 2010Q4

REPORT INFORMATION
  Report Type: 
  Country: None (occurrence: None)
  Receive Date: 20101022
  Receipt Date: 20101007
  Transmission Date: 20110411
  Serious: Yes (Hospitalization)
  Sender: FDA-Public Use
  Company Number: 1000016003

PATIENT
  Age: 54 Year
  Sex: Male

DRUGS (3)
  1. MILNACIPRAN (MILNACIPRAN HYDROCHLORIDE) (TABLETS) [Suspect]
     Indication: DEPRESSION
     Dosage: 50 MG (50 MG, 1 IN 1 D), ORAL
     Route: 048
     Dates: start: 20100723, end: 20100819
  2. LITHIUM CARBONATE [Suspect]
     Indication: DEPRESSION
     Dosage: 200 MG (200 MG, 1 IN 1 D), ORAL
     Route: 048
     Dates: start: 20100723, end: 20100819
  3. AMOXAPINE [Suspect]
     Indication: DEPRESSION
     Dosage: 1 G (1 GM, 1 IN 1 D), ORAL
     Route: 048
     Dates: start: 20100723, end: 20100819

REACTIONS (9)
  - ALANINE AMINOTRANSFERASE INCREASED [None]
  - ALVEOLITIS ALLERGIC [None]
  - ATELECTASIS [None]
  - BLOOD ALKALINE PHOSPHATASE INCREASED [None]
  - BLOOD CREATINE PHOSPHOKINASE INCREASED [None]
  - BLOOD LACTATE DEHYDROGENASE INCREASED [None]
  - GAMMA-GLUTAMYLTRANSFERASE INCREASED [None]
  - HEADACHE [None]
  - LUNG NEOPLASM [None]
